FAERS Safety Report 22675299 (Version 3)
Quarter: 2023Q4

REPORT INFORMATION
  Report Type: Spontaneous
  Country: US (occurrence: US)
  Receive Date: 20230706
  Receipt Date: 20231106
  Transmission Date: 20240110
  Serious: Yes (Other)
  Sender: FDA-Public Use
  Company Number: US-BRISTOL-MYERS SQUIBB COMPANY-2023-093906

PATIENT
  Age: 71 Year
  Sex: Female
  Weight: 72.57 kg

DRUGS (1)
  1. POMALYST [Suspect]
     Active Substance: POMALIDOMIDE
     Indication: Plasma cell myeloma
     Dosage: 3WKSON,1OFF
     Route: 048

REACTIONS (5)
  - Atrial fibrillation [Unknown]
  - Rash pruritic [Recovering/Resolving]
  - Butterfly rash [Recovering/Resolving]
  - Hypothyroidism [Not Recovered/Not Resolved]
  - Diverticulitis [Not Recovered/Not Resolved]
